FAERS Safety Report 25461649 (Version 2)
Quarter: 2025Q2

REPORT INFORMATION
  Report Type: Report from Study
  Country: EG (occurrence: EG)
  Receive Date: 20250620
  Receipt Date: 20250624
  Transmission Date: 20250716
  Serious: Yes (Hospitalization, Other)
  Sender: NOVARTIS
  Company Number: EG-002147023-NVSC2025EG098577

PATIENT
  Sex: Male

DRUGS (1)
  1. GILENYA [Suspect]
     Active Substance: FINGOLIMOD HYDROCHLORIDE
     Indication: Multiple sclerosis
     Dosage: 0.5 MG, QD (START DATE: TWO YEARS AGO)
     Route: 048

REACTIONS (16)
  - Decreased immune responsiveness [Not Recovered/Not Resolved]
  - Respiratory tract infection [Recovered/Resolved]
  - Pain [Recovered/Resolved]
  - Colitis [Recovered/Resolved]
  - Somnolence [Recovered/Resolved]
  - Vomiting [Recovered/Resolved]
  - Migraine [Recovered/Resolved]
  - Vision blurred [Recovered/Resolved]
  - Fatigue [Recovered/Resolved]
  - Aortic aneurysm [Not Recovered/Not Resolved]
  - Atrial hypertrophy [Not Recovered/Not Resolved]
  - Chest pain [Not Recovered/Not Resolved]
  - Memory impairment [Unknown]
  - Stress [Unknown]
  - Emotional disorder [Unknown]
  - Product size issue [Unknown]

NARRATIVE: CASE EVENT DATE: 20250101
